FAERS Safety Report 24535189 (Version 1)
Quarter: 2024Q4

REPORT INFORMATION
  Report Type: Spontaneous
  Country: ES (occurrence: ES)
  Receive Date: 20241022
  Receipt Date: 20241022
  Transmission Date: 20250114
  Serious: Yes (Hospitalization, Other)
  Sender: SANDOZ
  Company Number: ES-002147023-PHHY2019ES069329

PATIENT
  Age: 83 Year
  Sex: Female

DRUGS (2)
  1. ACENOCOUMAROL [Suspect]
     Active Substance: ACENOCOUMAROL
     Indication: Anticoagulant therapy
     Dosage: UNK
     Route: 048
  2. NITROGLYCERIN [Suspect]
     Active Substance: NITROGLYCERIN
     Indication: Product used for unknown indication
     Dosage: UNK
     Route: 062

REACTIONS (7)
  - International normalised ratio increased [Unknown]
  - Abdominal wall haematoma [Unknown]
  - Haematoma [Unknown]
  - Abdominal pain [Unknown]
  - Cough [Unknown]
  - Respiratory tract infection [Unknown]
  - Respiratory failure [Unknown]
